FAERS Safety Report 10219334 (Version 2)
Quarter: 2014Q2

REPORT INFORMATION
  Report Type: Report from Study
  Country: FR (occurrence: FR)
  Receive Date: 20140605
  Receipt Date: 20140616
  Transmission Date: 20141212
  Serious: Yes (Other)
  Sender: FDA-Public Use
  Company Number: PHHY2014FR067666

PATIENT
  Age: 56 Year
  Sex: Male

DRUGS (4)
  1. EXTAVIA [Suspect]
     Indication: MULTIPLE SCLEROSIS
     Dosage: 1 ML, QOD, 3 INJECTION SPER WEEK
     Route: 058
     Dates: start: 201008, end: 201405
  2. ALTEIS [Concomitant]
     Indication: HYPERTENSION
     Dosage: UNK UKN, UNK
  3. TAHOR [Concomitant]
     Dosage: 20 MG, UNK
  4. IMOVANE [Concomitant]
     Dosage: UNK

REACTIONS (3)
  - Pleural effusion [Unknown]
  - Pleurisy [Recovering/Resolving]
  - Influenza like illness [Recovered/Resolved]
